FAERS Safety Report 14966596 (Version 1)
Quarter: 2018Q2

REPORT INFORMATION
  Report Type: Spontaneous
  Country: FR (occurrence: FR)
  Receive Date: 20180604
  Receipt Date: 20180604
  Transmission Date: 20180711
  Serious: Yes (Death, Hospitalization)
  Sender: FDA-Public Use
  Company Number: FR-TEVA-2018-FR-900153

PATIENT
  Age: 62 Year
  Sex: Male
  Weight: 95 kg

DRUGS (5)
  1. VINORELBINE [Suspect]
     Active Substance: VINORELBINE\VINORELBINE TARTRATE
     Route: 041
     Dates: start: 20180205, end: 20180205
  2. SOLU-MEDROL [Suspect]
     Active Substance: METHYLPREDNISOLONE SODIUM SUCCINATE
     Route: 041
     Dates: start: 20180205, end: 20180205
  3. CISPLATIN. [Suspect]
     Active Substance: CISPLATIN
     Route: 041
     Dates: start: 20180205, end: 20180205
  4. ZOPHREN [Suspect]
     Active Substance: ONDANSETRON
     Route: 041
     Dates: start: 20180205, end: 20180205
  5. PLITICAN, SOLUTION INJECTABLE [Suspect]
     Active Substance: ALIZAPRIDE HYDROCHLORIDE
     Route: 041
     Dates: start: 20180205, end: 20180205

REACTIONS (1)
  - Cardio-respiratory arrest [Fatal]

NARRATIVE: CASE EVENT DATE: 20180205
